FAERS Safety Report 10656860 (Version 1)
Quarter: 2014Q4

REPORT INFORMATION
  Report Type: Report from Study
  Country: US (occurrence: US)
  Receive Date: 20141217
  Receipt Date: 20141217
  Transmission Date: 20150529
  Serious: Yes (Other)
  Sender: FDA-Public Use
  Company Number: US-ASTRAZENECA-2014SE95046

PATIENT
  Sex: Female

DRUGS (4)
  1. OMPREZOLE [Suspect]
     Active Substance: OMEPRAZOLE
     Indication: BARRETT^S OESOPHAGUS
     Dosage: TWO TIMES A DAY
     Route: 048
  2. NEXIUM [Suspect]
     Active Substance: ESOMEPRAZOLE MAGNESIUM
     Indication: BARRETT^S OESOPHAGUS
     Route: 048
  3. OMPREZOLE [Suspect]
     Active Substance: OMEPRAZOLE
     Indication: OESOPHAGEAL ATRESIA
     Dosage: TWO TIMES A DAY
     Route: 048
  4. NEXIUM [Suspect]
     Active Substance: ESOMEPRAZOLE MAGNESIUM
     Indication: OESOPHAGEAL ATRESIA
     Route: 048

REACTIONS (6)
  - Intentional product misuse [Unknown]
  - Off label use [Unknown]
  - Barrett^s oesophagus [Unknown]
  - Product use issue [Unknown]
  - Gastrointestinal haemorrhage [Unknown]
  - Haematemesis [Unknown]
